FAERS Safety Report 8402785-6 (Version None)
Quarter: 2012Q2

REPORT INFORMATION
  Report Type: 
  Country: None (occurrence: None)
  Receive Date: 20120601
  Receipt Date: 20120522
  Transmission Date: 20120825
  Serious: Yes (Hospitalization)
  Sender: FDA-Public Use
  Company Number: JP-ROCHE-694959

PATIENT
  Sex: Male

DRUGS (12)
  1. ACTEMRA [Suspect]
     Route: 041
     Dates: start: 20091207, end: 20100118
  2. PREDNISOLONE [Concomitant]
     Route: 048
     Dates: start: 20090914, end: 20091221
  3. PREDNISOLONE [Concomitant]
     Route: 048
  4. METHOTREXATE [Concomitant]
     Indication: JUVENILE ARTHRITIS
     Route: 048
  5. ACTEMRA [Suspect]
     Route: 041
  6. PREDNISOLONE [Concomitant]
     Indication: JUVENILE ARTHRITIS
     Route: 048
  7. PREDNISOLONE [Concomitant]
     Route: 048
     Dates: start: 20091222, end: 20100606
  8. ZITHROMAX [Concomitant]
     Dosage: DOSE FORM: PERORAL AGENT, DRUG:ZITHROMAC(AZITHROMYCIN HYDRATE)
     Route: 048
     Dates: start: 20100201, end: 20100203
  9. UNASYN [Concomitant]
     Dosage: DOSE FORM: MINUTE GRAIN, DRUG:UNASYN(SULTAMICILLIN TOSILATE)
     Route: 048
     Dates: start: 20100201, end: 20100205
  10. ACTEMRA [Suspect]
     Indication: JUVENILE ARTHRITIS
     Route: 041
     Dates: start: 20090721, end: 20090831
  11. ACTEMRA [Suspect]
     Route: 041
     Dates: start: 20090914, end: 20091109
  12. METHOTREXATE [Concomitant]
     Route: 048

REACTIONS (4)
  - PNEUMONIA [None]
  - ERYTHEMA MULTIFORME [None]
  - ARTHRITIS [None]
  - MATRIX METALLOPROTEINASE-3 INCREASED [None]
